FAERS Safety Report 11723543 (Version 3)
Quarter: 2016Q1

REPORT INFORMATION
  Report Type: Report from Study
  Country: JP (occurrence: JP)
  Receive Date: 20151111
  Receipt Date: 20160208
  Transmission Date: 20160525
  Serious: Yes (Hospitalization, Other)
  Sender: FDA-Public Use
  Company Number: JP-BRISTOL-MYERS SQUIBB COMPANY-BMS-2015-077238

PATIENT
  Age: 71 Year
  Sex: Male
  Weight: 60 kg

DRUGS (8)
  1. SELARA [Concomitant]
     Active Substance: EPLERENONE
     Indication: HYPERTENSION
     Dosage: 25 MG, UNK
     Route: 048
  2. DEPAS [Concomitant]
     Active Substance: ETIZOLAM
     Indication: HYPERTENSION
     Dosage: UNK
     Route: 048
     Dates: start: 20130910
  3. BEPRICOR [Concomitant]
     Active Substance: BEPRIDIL
     Indication: ATRIAL FIBRILLATION
     Dosage: 100 MG, UNK
     Route: 048
  4. MYSLEE [Concomitant]
     Active Substance: ZOLPIDEM TARTRATE
     Indication: INSOMNIA
     Dosage: 10 MG, UNK
     Route: 048
  5. NU-LOTAN [Concomitant]
     Active Substance: LOSARTAN POTASSIUM
     Indication: HYPERTENSION
     Dosage: 50 MG, UNK
     Route: 048
     Dates: start: 20140107, end: 20150611
  6. MAINTATE [Concomitant]
     Active Substance: BISOPROLOL FUMARATE
     Indication: HYPERTENSION
     Dosage: 1.25 MG, QD
     Route: 048
     Dates: start: 20140527
  7. APIXABAN [Suspect]
     Active Substance: APIXABAN
     Indication: EMBOLISM VENOUS
     Dosage: 5 MG, BID
     Route: 048
     Dates: start: 20140805, end: 20150610
  8. ARTIST [Concomitant]
     Active Substance: CARVEDILOL
     Indication: HYPERTENSION
     Dosage: 20 MG, UNK
     Route: 048
     Dates: end: 20141027

REACTIONS (2)
  - Renal infarct [Recovered/Resolved]
  - Atrial thrombosis [Unknown]

NARRATIVE: CASE EVENT DATE: 20150610
